FAERS Safety Report 5087181-4 (Version None)
Quarter: 2006Q3

REPORT INFORMATION
  Report Type: 
  Country: None (occurrence: None)
  Receive Date: 20060821
  Receipt Date: 20060808
  Transmission Date: 20061208
  Serious: Yes (Other)
  Sender: FDA-Public Use
  Company Number: 2006093400

PATIENT
  Age: 73 Year
  Sex: Female
  Weight: 75 kg

DRUGS (7)
  1. CARDURA [Suspect]
     Indication: HYPERTENSION
     Dosage: 4 MG (4 MG, FREQUENCY: DAILY INTERVAL: EVERY DAY), ORAL
     Route: 048
     Dates: start: 20060420
  2. RANITIDINE [Concomitant]
  3. CO-CODAMOL (CODEINE PHOSPHATE, PARACETAMOL) [Concomitant]
  4. GLICLAZIDE [Concomitant]
  5. ATORVASTATIN CALCIUM [Concomitant]
  6. METFORMIN [Concomitant]
  7. DILTIAZEM HCL [Concomitant]

REACTIONS (6)
  - BLOOD PRESSURE INADEQUATELY CONTROLLED [None]
  - BLOOD UREA DECREASED [None]
  - GLOMERULAR FILTRATION RATE DECREASED [None]
  - MEDICATION RESIDUE [None]
  - PHARMACEUTICAL PRODUCT COMPLAINT [None]
  - TREATMENT NONCOMPLIANCE [None]
